FAERS Safety Report 21656242 (Version 1)
Quarter: 2022Q4

REPORT INFORMATION
  Report Type: Spontaneous
  Country: US (occurrence: None)
  Receive Date: 20221128
  Receipt Date: 20221128
  Transmission Date: 20230113
  Serious: Yes (Hospitalization)
  Sender: FDA-Public Use
  Company Number: None

PATIENT
  Age: 35 Year
  Sex: Female

DRUGS (1)
  1. HUMIRA [Suspect]
     Active Substance: ADALIMUMAB
     Indication: Hidradenitis
     Dosage: FREQUENCY : WEEKLY;?
     Route: 058
     Dates: start: 20220430, end: 20221005

REACTIONS (5)
  - Drug hypersensitivity [None]
  - Gait inability [None]
  - Fluid retention [None]
  - Stasis dermatitis [None]
  - Therapy interrupted [None]

NARRATIVE: CASE EVENT DATE: 20221001
